FAERS Safety Report 9631154 (Version 1)
Quarter: 2013Q4

REPORT INFORMATION
  Report Type: Spontaneous
  Country: US (occurrence: US)
  Receive Date: 20131018
  Receipt Date: 20131018
  Transmission Date: 20140711
  Serious: No
  Sender: FDA-Public Use
  Company Number: US-BAYER-2013-125407

PATIENT
  Age: 57 Year
  Sex: Female

DRUGS (3)
  1. CIPRO [Suspect]
     Indication: CYSTITIS
     Dosage: 1 UNK, UNK
     Dates: start: 20130930
  2. CIPRO [Suspect]
     Indication: CYSTITIS
     Dosage: 2 UNK, UNK
     Dates: start: 20131001
  3. CIPRO [Suspect]
     Indication: CYSTITIS
     Dosage: 1 UNK, UNK
     Dates: start: 20131002, end: 20131002

REACTIONS (9)
  - Tongue disorder [Not Recovered/Not Resolved]
  - Paraesthesia [Not Recovered/Not Resolved]
  - Joint swelling [Not Recovered/Not Resolved]
  - Joint swelling [Not Recovered/Not Resolved]
  - Pain in extremity [Not Recovered/Not Resolved]
  - Hypoaesthesia oral [Not Recovered/Not Resolved]
  - Urticaria [Not Recovered/Not Resolved]
  - Hypoaesthesia [Not Recovered/Not Resolved]
  - Muscle spasms [Not Recovered/Not Resolved]
